FAERS Safety Report 19749765 (Version 1)
Quarter: 2021Q3

REPORT INFORMATION
  Report Type: Spontaneous
  Country: US (occurrence: US)
  Receive Date: 20210826
  Receipt Date: 20210826
  Transmission Date: 20211014
  Serious: Yes (Hospitalization, Other)
  Sender: FDA-Public Use
  Company Number: US-ALKEM LABORATORIES LIMITED-US-ALKEM-2021-03541

PATIENT
  Age: 34 Year
  Sex: Male

DRUGS (3)
  1. ZOLPIDEM [Suspect]
     Active Substance: ZOLPIDEM TARTRATE
     Indication: CIRCADIAN RHYTHM SLEEP DISORDER
     Dosage: 100?150 MG
     Route: 065
  2. OXYCODONE HYDROCHLORIDE. [Suspect]
     Active Substance: OXYCODONE HYDROCHLORIDE
     Indication: CIRCADIAN RHYTHM SLEEP DISORDER
     Dosage: UNK
     Route: 065
  3. LITHIUM. [Concomitant]
     Active Substance: LITHIUM
     Indication: BIPOLAR DISORDER
     Dosage: 900 MG/DAY, OD
     Route: 065

REACTIONS (3)
  - Self-medication [Unknown]
  - Drug withdrawal convulsions [Unknown]
  - Drug dependence [Unknown]
